FAERS Safety Report 4479569-7 (Version None)
Quarter: 2004Q4

REPORT INFORMATION
  Report Type: 
  Country: None (occurrence: None)
  Receive Date: 20041015
  Receipt Date: 20041004
  Transmission Date: 20050328
  Serious: Yes (Other)
  Sender: FDA-Public Use
  Company Number: A-US2004-07077

PATIENT
  Age: 64 Year
  Sex: Female

DRUGS (10)
  1. TRACLEER [Suspect]
     Indication: PULMONARY HYPERTENSION
     Dosage: 125 MG, BID, ORAL
     Route: 048
     Dates: start: 20020124, end: 20040712
  2. REMODULIN [Concomitant]
  3. LASIX [Concomitant]
  4. PREVACID (LANSOPRASOLE) [Concomitant]
  5. ZAROXOLYN [Concomitant]
  6. MICRO-K (POTASSIUM CHLORIDE) [Concomitant]
  7. TEMAZEPAM [Concomitant]
  8. CIPRO [Concomitant]
  9. TRACLEER [Suspect]
     Dosage: 62.5 MG, BID, ORAL
     Route: 048
     Dates: start: 20040713, end: 20040803
  10. TRACLEER [Suspect]
     Dosage: 62.5 MG, BID, ORAL
     Route: 048
     Dates: start: 20011227, end: 20020123

REACTIONS (14)
  - ALANINE AMINOTRANSFERASE INCREASED [None]
  - ASPARTATE AMINOTRANSFERASE INCREASED [None]
  - BILIARY DILATATION [None]
  - BLOOD ALKALINE PHOSPHATASE INCREASED [None]
  - BLOOD BILIRUBIN INCREASED [None]
  - CHOLELITHIASIS [None]
  - DIARRHOEA [None]
  - DIZZINESS [None]
  - DYSPNOEA [None]
  - FATIGUE [None]
  - HYPOTENSION [None]
  - MUSCLE CRAMP [None]
  - OEDEMA PERIPHERAL [None]
  - ULCER [None]
